FAERS Safety Report 12220566 (Version 3)
Quarter: 2016Q2

REPORT INFORMATION
  Report Type: Spontaneous
  Country: CH (occurrence: CH)
  Receive Date: 20160330
  Receipt Date: 20160428
  Transmission Date: 20160815
  Serious: Yes (Hospitalization)
  Sender: FDA-Public Use
  Company Number: CH-SA-2016SA060109

PATIENT
  Age: 55 Year
  Sex: Male

DRUGS (17)
  1. FLUDARABINE [Suspect]
     Active Substance: FLUDARABINE PHOSPHATE
     Indication: BONE MARROW CONDITIONING REGIMEN
     Route: 041
     Dates: start: 20160304, end: 20160308
  2. CLARITINE [Concomitant]
     Active Substance: LORATADINE
     Indication: BONE MARROW CONDITIONING REGIMEN
     Route: 048
     Dates: start: 20160304, end: 20160306
  3. DAFALGAN [Concomitant]
     Active Substance: ACETAMINOPHEN
     Route: 048
     Dates: start: 20160303
  4. THYMOGLOBULINE [Suspect]
     Active Substance: LAPINE T-LYMPHOCYTE IMMUNE GLOBULIN
     Indication: BONE MARROW CONDITIONING REGIMEN
     Route: 041
     Dates: start: 20160305, end: 20160305
  5. URSOFALK [Concomitant]
     Active Substance: URSODIOL
     Route: 048
     Dates: start: 20160303
  6. POLYMYXIN B SULFATE/NEOMYCIN [Concomitant]
     Route: 048
     Dates: start: 20160303
  7. SOLU-MEDROL [Concomitant]
     Active Substance: METHYLPREDNISOLONE SODIUM SUCCINATE
     Indication: BONE MARROW CONDITIONING REGIMEN
     Route: 040
     Dates: start: 20160304, end: 20160306
  8. BACTRIM [Concomitant]
     Active Substance: SULFAMETHOXAZOLE\TRIMETHOPRIM
     Route: 040
  9. NEXIUM [Concomitant]
     Active Substance: ESOMEPRAZOLE MAGNESIUM
     Route: 040
     Dates: start: 20160303, end: 20160310
  10. MABTHERA [Concomitant]
     Active Substance: RITUXIMAB
     Route: 041
     Dates: end: 20160215
  11. THYMOGLOBULINE [Suspect]
     Active Substance: LAPINE T-LYMPHOCYTE IMMUNE GLOBULIN
     Indication: BONE MARROW CONDITIONING REGIMEN
     Route: 041
     Dates: start: 20160306, end: 20160306
  12. ALKERAN [Concomitant]
     Active Substance: MELPHALAN
     Indication: BONE MARROW CONDITIONING REGIMEN
     Dosage: INJECTION/INFUSION
     Route: 041
     Dates: start: 20160307, end: 20160308
  13. THYMOGLOBULINE [Suspect]
     Active Substance: LAPINE T-LYMPHOCYTE IMMUNE GLOBULIN
     Indication: BONE MARROW CONDITIONING REGIMEN
     Dosage: INSUSION AMPOULES
     Route: 041
     Dates: start: 20160304, end: 20160304
  14. SODIUM CHLORIDE. [Concomitant]
     Active Substance: SODIUM CHLORIDE
     Indication: FLUID REPLACEMENT
     Route: 041
     Dates: start: 20160304
  15. HEPARIN [Concomitant]
     Active Substance: HEPARIN SODIUM
     Route: 041
     Dates: start: 20160303
  16. VALTREX [Concomitant]
     Active Substance: VALACYCLOVIR HYDROCHLORIDE
     Dates: start: 20160303
  17. ZOFRAN [Concomitant]
     Active Substance: ONDANSETRON HYDROCHLORIDE
     Indication: BONE MARROW CONDITIONING REGIMEN
     Route: 048
     Dates: start: 20160304

REACTIONS (4)
  - Pyrexia [Recovered/Resolved]
  - C-reactive protein increased [Recovered/Resolved]
  - Serum sickness-like reaction [Recovered/Resolved]
  - Acute kidney injury [Recovered/Resolved]

NARRATIVE: CASE EVENT DATE: 20160307
